FAERS Safety Report 7667914-0 (Version None)
Quarter: 2011Q3

REPORT INFORMATION
  Report Type: 
  Country: None (occurrence: None)
  Receive Date: 20110808
  Receipt Date: 20110801
  Transmission Date: 20111222
  Serious: Yes (Hospitalization)
  Sender: FDA-Public Use
  Company Number: US-BIOGENIDEC-2011BI018781

PATIENT
  Age: 56 Year
  Sex: Female
  Weight: 64 kg

DRUGS (18)
  1. ALPRAZOLAM [Concomitant]
     Indication: ANXIETY
     Route: 048
  2. NEXIUM [Concomitant]
     Indication: GASTROOESOPHAGEAL REFLUX DISEASE
     Route: 048
  3. MELATONIN [Concomitant]
     Indication: INSOMNIA
     Route: 048
  4. PROVIGIL [Concomitant]
     Indication: FATIGUE
     Route: 048
  5. FUROSEMIDE [Concomitant]
     Indication: FLUID RETENTION
     Route: 048
  6. SANCTURA XR [Concomitant]
     Indication: NEUROGENIC BLADDER
     Route: 048
  7. AMBIEN [Concomitant]
     Indication: INSOMNIA
     Route: 048
  8. LORATADINE [Concomitant]
     Indication: MULTIPLE ALLERGIES
     Route: 048
  9. COUMADIN [Concomitant]
     Indication: DEEP VEIN THROMBOSIS
     Route: 048
     Dates: end: 20110501
  10. BACLOFEN [Concomitant]
     Indication: MUSCLE SPASTICITY
     Route: 048
  11. CITALOPRAM HYDROBROMIDE [Concomitant]
     Indication: DEPRESSION
     Route: 048
  12. TYSABRI [Suspect]
     Indication: MULTIPLE SCLEROSIS
     Route: 042
     Dates: start: 20080110
  13. DOCUSATE SODIUM [Concomitant]
     Indication: CONSTIPATION
     Route: 048
  14. NORCO [Concomitant]
     Indication: PAIN
     Route: 048
  15. FOXAMAX [Concomitant]
     Indication: OSTEOPOROSIS
     Route: 048
  16. SANCTURA XR [Concomitant]
     Indication: URINARY INCONTINENCE
     Route: 048
  17. NORCO [Concomitant]
     Route: 048
  18. WELLBUTRIN [Concomitant]
     Indication: DEPRESSION
     Route: 048

REACTIONS (2)
  - CELLULITIS [None]
  - URINARY TRACT INFECTION [None]
